FAERS Safety Report 7313632-8 (Version None)
Quarter: 2011Q1

REPORT INFORMATION
  Report Type: 
  Country: None (occurrence: None)
  Receive Date: 20110224
  Receipt Date: 20110224
  Transmission Date: 20110831
  Serious: No
  Sender: FDA-Public Use
  Company Number: None

PATIENT
  Sex: Male
  Weight: 108.8633 kg

DRUGS (1)
  1. TRIAD ALCOHOL PREP PADS STERILE TRIAD [Suspect]
     Indication: THERAPEUTIC SKIN CARE TOPICAL
     Dosage: USE 6 PER DAY Q 12 HR SQ NOT USING RECALLED PADS
     Route: 058
     Dates: start: 20040214, end: 20110223

REACTIONS (7)
  - FATIGUE [None]
  - MALAISE [None]
  - URTICARIA [None]
  - INADEQUATE ANALGESIA [None]
  - PETECHIAE [None]
  - PRODUCT QUALITY ISSUE [None]
  - RASH [None]
